FAERS Safety Report 5680618-9 (Version None)
Quarter: 2008Q1

REPORT INFORMATION
  Report Type: 
  Country: None (occurrence: None)
  Receive Date: 20080326
  Receipt Date: 20080318
  Transmission Date: 20080703
  Serious: Yes (Other)
  Sender: FDA-Public Use
  Company Number: JP-JNJFOC-20080304596

PATIENT
  Sex: Female
  Weight: 80 kg

DRUGS (5)
  1. RISPERDAL [Suspect]
     Indication: SCHIZOPHRENIA, PARANOID TYPE
     Route: 048
  2. SEIBULE [Concomitant]
     Indication: DIABETES MELLITUS
  3. AMARYL [Concomitant]
  4. AMARYL [Concomitant]
  5. AMARYL [Concomitant]
     Indication: DIABETES MELLITUS

REACTIONS (2)
  - DIABETES MELLITUS [None]
  - GLYCOSYLATED HAEMOGLOBIN INCREASED [None]
